FAERS Safety Report 11785185 (Version 1)
Quarter: 2015Q4

REPORT INFORMATION
  Report Type: Spontaneous
  Country: US (occurrence: None)
  Receive Date: 20151125
  Receipt Date: 20151125
  Transmission Date: 20160305
  Serious: Yes (Life-Threatening, Hospitalization, Other)
  Sender: FDA-Public Use
  Company Number: None

PATIENT
  Age: 74 Year
  Sex: Male
  Weight: 78.02 kg

DRUGS (8)
  1. FLOMAX [Concomitant]
     Active Substance: TAMSULOSIN HYDROCHLORIDE
  2. NORVASC [Concomitant]
     Active Substance: AMLODIPINE BESYLATE
  3. OMEPRAZOLE. [Concomitant]
     Active Substance: OMEPRAZOLE
  4. SPECTRAVITE [Concomitant]
  5. BACTRIM DS [Suspect]
     Active Substance: SULFAMETHOXAZOLE\TRIMETHOPRIM
     Indication: LOCALISED INFECTION
     Dosage: 800/160 MG, 3 PILLS. TOTAL;
     Route: 048
     Dates: start: 20141223, end: 20141224
  6. VITAMIN C [Concomitant]
     Active Substance: ASCORBIC ACID
  7. CIALIS [Concomitant]
     Active Substance: TADALAFIL
  8. BABY ASPIRIN [Concomitant]
     Active Substance: ASPIRIN

REACTIONS (21)
  - Agitation [None]
  - Headache [None]
  - Anxiety [None]
  - Oral fungal infection [None]
  - Dysarthria [None]
  - Tongue paralysis [None]
  - Insomnia [None]
  - Anger [None]
  - Frustration [None]
  - Tongue discolouration [None]
  - Speech disorder [None]
  - Nausea [None]
  - Confusional state [None]
  - Tongue biting [None]
  - Mastication disorder [None]
  - Swollen tongue [None]
  - Throat tightness [None]
  - Plicated tongue [None]
  - Tremor [None]
  - Diarrhoea [None]
  - Thinking abnormal [None]

NARRATIVE: CASE EVENT DATE: 20141223
